FAERS Safety Report 17268813 (Version 1)
Quarter: 2020Q1

REPORT INFORMATION
  Report Type: Spontaneous
  Country: JP (occurrence: JP)
  Receive Date: 20200114
  Receipt Date: 20200114
  Transmission Date: 20200409
  Serious: Yes (Hospitalization, Other)
  Sender: FDA-Public Use
  Company Number: JP-INSUD PHARMA-1912JP00189

PATIENT

DRUGS (3)
  1. IGURATIMOD [Concomitant]
     Active Substance: IGURATIMOD
     Indication: RHEUMATOID ARTHRITIS
     Dosage: FOR THE PAST 6 YEARS
     Route: 065
  2. NUVESSA [Suspect]
     Active Substance: METRONIDAZOLE
     Indication: SPLENIC ABSCESS
     Dosage: 1000 MILLIGRAM, QD
     Route: 065
  3. PREDNISOLONE. [Concomitant]
     Active Substance: PREDNISOLONE
     Indication: RHEUMATOID ARTHRITIS
     Dosage: FOR THE PAST 6 YEARS
     Route: 065

REACTIONS (3)
  - Seizure [Recovering/Resolving]
  - Altered state of consciousness [Recovering/Resolving]
  - Toxic encephalopathy [Recovering/Resolving]
